FAERS Safety Report 9371749 (Version 1)
Quarter: 2013Q2

REPORT INFORMATION
  Report Type: Report from Study
  Country: KR (occurrence: KR)
  Receive Date: 20130627
  Receipt Date: 20130627
  Transmission Date: 20140414
  Serious: Yes (Death)
  Sender: FDA-Public Use
  Company Number: KR-ROCHE-1241243

PATIENT
  Sex: 0

DRUGS (6)
  1. MYCOPHENOLATE MOFETIL [Suspect]
     Indication: RENAL TRANSPLANT
     Route: 048
  2. CYCLOSPORINE [Concomitant]
     Route: 065
  3. METHYLPREDNISOLONE [Concomitant]
     Dosage: DELIVERED IMMEDIATELY PREOPERATIVELY
     Route: 042
  4. METHYLPREDNISOLONE [Concomitant]
     Dosage: TWICE ON THE FIRST DAY AND TAPERING TO THE FOURTH DAY AFTER TRANSPLANTATION
     Route: 042
  5. PREDNISOLONE [Concomitant]
     Route: 048
  6. PREDNISOLONE [Concomitant]
     Dosage: REDUCED FROM 30MG/D OVER 4 MONTHS
     Route: 048

REACTIONS (4)
  - Neoplasm malignant [Fatal]
  - Pneumonia [Unknown]
  - Urinary tract infection [Unknown]
  - Cytomegalovirus infection [Unknown]
